FAERS Safety Report 9306262 (Version 2)
Quarter: 2013Q3

REPORT INFORMATION
  Report Type: Spontaneous
  Country: BR (occurrence: BR)
  Receive Date: 20130523
  Receipt Date: 20130805
  Transmission Date: 20140515
  Serious: Yes (Other)
  Sender: FDA-Public Use
  Company Number: BR-PFIZER INC-2013155464

PATIENT
  Age: 49 Year
  Sex: Female
  Weight: 70 kg

DRUGS (1)
  1. ADVIL [Suspect]
     Indication: HEADACHE
     Dosage: SINGLE DOSE
     Route: 048
     Dates: start: 20130517, end: 20130517

REACTIONS (5)
  - Rash pustular [Recovering/Resolving]
  - Pruritus generalised [Recovering/Resolving]
  - Deformity [Recovering/Resolving]
  - Dry skin [Not Recovered/Not Resolved]
  - Rash maculo-papular [Unknown]
